FAERS Safety Report 4794514-2 (Version None)
Quarter: 2005Q4

REPORT INFORMATION
  Report Type: 
  Country: None (occurrence: None)
  Receive Date: 20051011
  Receipt Date: 20050929
  Transmission Date: 20060501
  Serious: Yes (Hospitalization)
  Sender: FDA-Public Use
  Company Number: 2005UW14616

PATIENT
  Age: 16 Year
  Sex: Male
  Weight: 71.7 kg

DRUGS (6)
  1. SEROQUEL [Suspect]
     Indication: ATTENTION DEFICIT/HYPERACTIVITY DISORDER
     Route: 048
  2. SEROQUEL [Suspect]
     Indication: BIPOLAR DISORDER
     Route: 048
  3. SEROQUEL [Suspect]
     Indication: ANXIETY
     Route: 048
  4. PROVIGIL [Concomitant]
  5. LAMICTAL [Concomitant]
  6. LEXAPRO [Concomitant]

REACTIONS (6)
  - BLOOD UREA DECREASED [None]
  - DEPRESSION [None]
  - HYPERTENSION [None]
  - HYPOKALAEMIA [None]
  - SUICIDAL IDEATION [None]
  - SYNCOPE [None]
